FAERS Safety Report 18940870 (Version 1)
Quarter: 2021Q1

REPORT INFORMATION
  Report Type: Spontaneous
  Country: IT (occurrence: IT)
  Receive Date: 20210225
  Receipt Date: 20210225
  Transmission Date: 20210420
  Serious: Yes (Life-Threatening, Hospitalization, Other)
  Sender: FDA-Public Use
  Company Number: IT-SGP-000016

PATIENT
  Age: 2 Year

DRUGS (8)
  1. CICLOSPORIN [Suspect]
     Active Substance: CYCLOSPORINE
     Indication: HAEMOPHAGOCYTIC LYMPHOHISTIOCYTOSIS
     Route: 048
  2. PREDNISONE. [Suspect]
     Active Substance: PREDNISONE
     Indication: STILL^S DISEASE
     Route: 048
  3. ANAKINRA [Suspect]
     Active Substance: ANAKINRA
     Indication: MYOCARDITIS
     Route: 058
  4. PREDNISONE. [Suspect]
     Active Substance: PREDNISONE
     Indication: STILL^S DISEASE
     Route: 065
  5. METHYLPREDNISOLONE. [Suspect]
     Active Substance: METHYLPREDNISOLONE
     Indication: STILL^S DISEASE
     Dosage: GIVEN FOR 2 DAYS
     Route: 042
  6. IMMUNOGLOBULINS NOS [Suspect]
     Active Substance: IMMUNE GLOBULIN NOS
     Indication: MYOCARDITIS
     Dosage: FOR 5 DAYS
  7. TEICOPLANIN [Suspect]
     Active Substance: TEICOPLANIN
     Indication: STILL^S DISEASE
     Route: 042
  8. METHYLPREDNISOLONE. [Suspect]
     Active Substance: METHYLPREDNISOLONE
     Indication: HAEMOPHAGOCYTIC LYMPHOHISTIOCYTOSIS
     Route: 042

REACTIONS (11)
  - Product use in unapproved indication [Unknown]
  - Hypotension [Unknown]
  - Anaemia [Unknown]
  - Thrombocytopenia [Unknown]
  - Capillary leak syndrome [Unknown]
  - Neutropenia [Recovered/Resolved]
  - Myocarditis [Recovered/Resolved]
  - Tachycardia [Unknown]
  - Weight increased [Unknown]
  - Oliguria [Unknown]
  - Cardiac arrest [Unknown]
